FAERS Safety Report 17845776 (Version 1)
Quarter: 2020Q2

REPORT INFORMATION
  Report Type: Spontaneous
  Country: DE (occurrence: DE)
  Receive Date: 20200601
  Receipt Date: 20200601
  Transmission Date: 20200714
  Serious: Yes (Life-Threatening, Hospitalization, Other)
  Sender: FDA-Public Use
  Company Number: DE-MACLEODS PHARMACEUTICALS US LTD-MAC2020026609

PATIENT

DRUGS (1)
  1. VENLAFAXINE [Suspect]
     Active Substance: VENLAFAXINE HYDROCHLORIDE
     Indication: PRODUCT USED FOR UNKNOWN INDICATION
     Dosage: 17.5 GRAM, DELAYED RELEASE
     Route: 065

REACTIONS (14)
  - Disseminated intravascular coagulation [Unknown]
  - Electrocardiogram QT prolonged [Unknown]
  - Lactic acidosis [Unknown]
  - Sinus tachycardia [Unknown]
  - Toxicity to various agents [Unknown]
  - Serotonin syndrome [Unknown]
  - Septic shock [Unknown]
  - Acute hepatic failure [Unknown]
  - Left ventricular dysfunction [Recovered/Resolved]
  - Acute kidney injury [Unknown]
  - Hypoglycaemia [Unknown]
  - Haemodynamic instability [Unknown]
  - Pneumonia [Recovered/Resolved]
  - Overdose [Unknown]
